FAERS Safety Report 7105983-7 (Version None)
Quarter: 2010Q4

REPORT INFORMATION
  Report Type: 
  Country: None (occurrence: None)
  Receive Date: 20101116
  Receipt Date: 20101109
  Transmission Date: 20110411
  Serious: Yes (Other)
  Sender: FDA-Public Use
  Company Number: JP-BAYER-201015174BYL

PATIENT
  Age: 75 Year
  Sex: Male
  Weight: 71 kg

DRUGS (5)
  1. NEXAVAR [Suspect]
     Indication: METASTATIC RENAL CELL CARCINOMA
     Dosage: UNIT DOSE: 200 MG
     Route: 048
     Dates: start: 20100825, end: 20100908
  2. NEXAVAR [Suspect]
     Dosage: UNIT DOSE: 200 MG
     Route: 048
     Dates: start: 20100915, end: 20100929
  3. AMARYL [Concomitant]
     Indication: DIABETES MELLITUS
     Dosage: UNIT DOSE: 0.5 MG
     Route: 048
     Dates: end: 20101015
  4. RIVOTRIL [Concomitant]
     Indication: HICCUPS
     Dosage: UNIT DOSE: 0.5 MG
     Route: 048
     Dates: start: 20081006
  5. FLUITRAN [Concomitant]
     Indication: HICCUPS
     Dosage: UNIT DOSE: 2 MG
     Route: 048
     Dates: start: 20100402

REACTIONS (1)
  - LIVER DISORDER [None]
